FAERS Safety Report 24084626 (Version 1)
Quarter: 2024Q3

REPORT INFORMATION
  Report Type: Spontaneous
  Country: CA (occurrence: CA)
  Receive Date: 20240712
  Receipt Date: 20240712
  Transmission Date: 20241017
  Serious: Yes (Life-Threatening)
  Sender: ACCORD
  Company Number: None

PATIENT
  Age: 58 Year
  Sex: Female

DRUGS (1)
  1. APIXABAN [Suspect]
     Active Substance: APIXABAN
     Indication: Product used for unknown indication
     Dosage: 2 EVERY 1 DAYS

REACTIONS (3)
  - Haematoma [Recovering/Resolving]
  - Shock haemorrhagic [Recovering/Resolving]
  - Haemorrhage [Recovering/Resolving]
